FAERS Safety Report 4320138-7 (Version None)
Quarter: 2004Q1

REPORT INFORMATION
  Report Type: 
  Country: None (occurrence: None)
  Receive Date: 20040317
  Receipt Date: 20040305
  Transmission Date: 20041129
  Serious: Yes (Other)
  Sender: FDA-Public Use
  Company Number: GBWYE510714JAN04

PATIENT
  Age: 45 Year
  Sex: Male

DRUGS (3)
  1. EFFEXOR [Suspect]
     Indication: DEPRESSION
     Dosage: 37.5 MG 2X PER 1 DAY ORAL
     Route: 048
     Dates: start: 20031230
  2. INSULIN ACTRAPID HUMAN (INSULIN HUMAN) [Concomitant]
  3. INSULIN INSULATED (INSULIN INJECTION, ISOPHANE) [Concomitant]

REACTIONS (1)
  - HYPOGLYCAEMIA UNAWARENESS [None]
